FAERS Safety Report 13941772 (Version 2)
Quarter: 2017Q3

REPORT INFORMATION
  Report Type: Report from Study
  Country: US (occurrence: US)
  Receive Date: 20170906
  Receipt Date: 20170919
  Transmission Date: 20171127
  Serious: Yes (Death, Hospitalization, Other)
  Sender: FDA-Public Use
  Company Number: US-GILEAD-2017-0291469

PATIENT
  Age: 83 Year
  Sex: Male
  Weight: 111.57 kg

DRUGS (22)
  1. SYNTHROID [Concomitant]
     Active Substance: LEVOTHYROXINE SODIUM
  2. ZOFRAN [Concomitant]
     Active Substance: ONDANSETRON HYDROCHLORIDE
  3. RITUXAN [Concomitant]
     Active Substance: RITUXIMAB
  4. SINEMET [Concomitant]
     Active Substance: CARBIDOPA\LEVODOPA
  5. CATAPRES-TTS [Concomitant]
     Active Substance: CLONIDINE
  6. XOPENEX HFA [Concomitant]
     Active Substance: LEVALBUTEROL TARTRATE
  7. SEROQUEL [Concomitant]
     Active Substance: QUETIAPINE FUMARATE
  8. IDELALISIB [Suspect]
     Active Substance: IDELALISIB
     Indication: LYMPHOMA
     Dosage: 150 MG, BID
     Route: 048
     Dates: start: 20170710, end: 20170731
  9. IDELALISIB [Suspect]
     Active Substance: IDELALISIB
     Indication: CHRONIC LYMPHOCYTIC LEUKAEMIA
  10. XANAX [Concomitant]
     Active Substance: ALPRAZOLAM
  11. ASPIRIN                            /00002701/ [Concomitant]
     Active Substance: ASPIRIN
  12. WELLBUTRIN [Concomitant]
     Active Substance: BUPROPION HYDROCHLORIDE
  13. FLONASE                            /00908302/ [Concomitant]
     Active Substance: MOMETASONE FUROATE
  14. REMERON [Concomitant]
     Active Substance: MIRTAZAPINE
  15. ZOLOFT [Concomitant]
     Active Substance: SERTRALINE HYDROCHLORIDE
  16. ZYLOPRIM [Concomitant]
     Active Substance: ALLOPURINOL
  17. HYDRODIURIL [Concomitant]
     Active Substance: HYDROCHLOROTHIAZIDE
  18. PRINIVIL [Concomitant]
     Active Substance: LISINOPRIL
  19. HYTRIN [Concomitant]
     Active Substance: TERAZOSIN HYDROCHLORIDE
  20. ZESTRIL [Concomitant]
     Active Substance: LISINOPRIL
  21. PRILOSEC [Concomitant]
     Active Substance: OMEPRAZOLE MAGNESIUM
  22. ZANTAC [Concomitant]
     Active Substance: RANITIDINE HYDROCHLORIDE

REACTIONS (5)
  - Pneumonia [Unknown]
  - Cardiac failure [Fatal]
  - Urinary tract infection [Fatal]
  - Immunodeficiency [Unknown]
  - Confusional state [Unknown]

NARRATIVE: CASE EVENT DATE: 20170827
